FAERS Safety Report 17475137 (Version 1)
Quarter: 2020Q1

REPORT INFORMATION
  Report Type: Spontaneous
  Country: US (occurrence: US)
  Receive Date: 20200228
  Receipt Date: 20200228
  Transmission Date: 20200409
  Serious: No
  Sender: FDA-Public Use
  Company Number: US-ABBVIE-20K-163-3220455-00

PATIENT
  Sex: Male

DRUGS (2)
  1. TESTOSTERONE. [Suspect]
     Active Substance: TESTOSTERONE
     Route: 061
     Dates: start: 201912
  2. TESTOSTERONE. [Suspect]
     Active Substance: TESTOSTERONE
     Indication: SECONDARY HYPOGONADISM
     Route: 061
     Dates: start: 201910, end: 201912

REACTIONS (1)
  - Blood testosterone decreased [Not Recovered/Not Resolved]

NARRATIVE: CASE EVENT DATE: 201912
